FAERS Safety Report 22325702 (Version 1)
Quarter: 2023Q2

REPORT INFORMATION
  Report Type: Spontaneous
  Country: US (occurrence: None)
  Receive Date: 20230510
  Receipt Date: 20230510
  Transmission Date: 20230722
  Serious: Yes (Hospitalization)
  Sender: FDA-Public Use
  Company Number: None

PATIENT
  Age: 51 Year
  Sex: Male
  Weight: 92.7 kg

DRUGS (2)
  1. MIRCERA [Suspect]
     Active Substance: METHOXY POLYETHYLENE GLYCOL-EPOETIN BETA
     Route: 042
     Dates: start: 20230410, end: 20230424
  2. DIETARY SUPPLEMENT [Suspect]
     Active Substance: DIETARY SUPPLEMENT

REACTIONS (7)
  - Blood pressure increased [None]
  - Heart rate increased [None]
  - Respiratory arrest [None]
  - Blood potassium increased [None]
  - Haemoglobin decreased [None]
  - Cyanosis [None]
  - Choking [None]

NARRATIVE: CASE EVENT DATE: 20230424
